FAERS Safety Report 7899466-4 (Version None)
Quarter: 2011Q4

REPORT INFORMATION
  Report Type: 
  Country: None (occurrence: None)
  Receive Date: 20111107
  Receipt Date: 20110914
  Transmission Date: 20120403
  Serious: No
  Sender: FDA-Public Use
  Company Number: US-AMGEN-USASP2011047681

PATIENT
  Age: 57 Year
  Sex: Female

DRUGS (3)
  1. ENBREL [Suspect]
     Indication: OSTEOARTHRITIS
  2. ENBREL [Suspect]
     Indication: RHEUMATOID ARTHRITIS
     Dosage: 50 MG, QWK
     Dates: start: 20110826
  3. ENBREL [Suspect]
     Indication: SJOGREN'S SYNDROME

REACTIONS (12)
  - RHINORRHOEA [None]
  - INJECTION SITE RASH [None]
  - COUGH [None]
  - INJECTION SITE SWELLING [None]
  - INJECTION SITE PRURITUS [None]
  - CHILLS [None]
  - ASTHENIA [None]
  - PARANASAL SINUS HYPERSECRETION [None]
  - HEADACHE [None]
  - RESPIRATORY TRACT CONGESTION [None]
  - FATIGUE [None]
  - PYREXIA [None]
